FAERS Safety Report 6470116-7 (Version None)
Quarter: 2009Q4

REPORT INFORMATION
  Report Type: 
  Country: None (occurrence: None)
  Receive Date: 20091203
  Receipt Date: 20091125
  Transmission Date: 20100525
  Serious: Yes (Other)
  Sender: FDA-Public Use
  Company Number: IT-ABBOTT-09P-083-0609095-00

PATIENT
  Sex: Female

DRUGS (14)
  1. CLARITHROMYCIN [Suspect]
     Indication: PNEUMONITIS
     Route: 048
     Dates: start: 20090615, end: 20090618
  2. FIDATO [Suspect]
     Indication: PNEUMONITIS
     Route: 042
     Dates: start: 20090611, end: 20090615
  3. LEVOXACIN [Suspect]
     Indication: PNEUMONITIS
     Route: 042
     Dates: start: 20090611, end: 20090615
  4. POTASSIUM CHLORIDE [Concomitant]
     Indication: DRUG USE FOR UNKNOWN INDICATION
     Route: 041
  5. PROGRAF [Concomitant]
     Indication: DRUG USE FOR UNKNOWN INDICATION
     Dosage: 10 MG
     Route: 048
  6. DELTACORTENE [Concomitant]
     Indication: DRUG USE FOR UNKNOWN INDICATION
     Dosage: 2.5 MG
     Route: 048
  7. CELLCEPT [Concomitant]
     Indication: DRUG USE FOR UNKNOWN INDICATION
     Dosage: 500 MG
     Route: 048
  8. LIMPIDEX [Concomitant]
     Indication: DRUG USE FOR UNKNOWN INDICATION
     Dosage: 30 MG
     Route: 048
  9. LASIX [Concomitant]
     Indication: DRUG USE FOR UNKNOWN INDICATION
     Dosage: 50 MG
  10. TICLID [Concomitant]
     Indication: DRUG USE FOR UNKNOWN INDICATION
     Dosage: 250 MG
     Route: 048
  11. SELECTIN [Concomitant]
     Indication: DRUG USE FOR UNKNOWN INDICATION
     Dosage: 20 MG
     Route: 048
  12. COUMADIN [Concomitant]
     Indication: DRUG USE FOR UNKNOWN INDICATION
  13. ZYLORIC [Concomitant]
     Indication: DRUG USE FOR UNKNOWN INDICATION
     Dosage: 150 MG
     Route: 048
  14. EFFERALGAN [Concomitant]
     Indication: DRUG USE FOR UNKNOWN INDICATION
     Dosage: 500 MG
     Route: 048

REACTIONS (7)
  - ABDOMINAL PAIN [None]
  - BRONCHITIS CHRONIC [None]
  - HIATUS HERNIA [None]
  - PRURITUS [None]
  - RASH ERYTHEMATOUS [None]
  - RENAL FAILURE CHRONIC [None]
  - SKIN REACTION [None]
